FAERS Safety Report 4372652-6 (Version None)
Quarter: 2004Q2

REPORT INFORMATION
  Report Type: 
  Country: None (occurrence: None)
  Receive Date: 20040526
  Receipt Date: 20040514
  Transmission Date: 20050107
  Serious: Yes (Life-Threatening)
  Sender: FDA-Public Use
  Company Number: 2004026315

PATIENT
  Age: 40 Year
  Sex: Female

DRUGS (4)
  1. PHENYTOIN SODIUM [Suspect]
     Indication: GRAND MAL CONVULSION
     Dosage: 300 MG (300 MG, 1 IN 1 D), ORAL
     Route: 048
     Dates: start: 20040411, end: 20040418
  2. CEFOTAXIME SODIUM [Suspect]
     Indication: PERIORBITAL CELLULITIS
     Dosage: 3 GRAM (1 GRAM, 3 IN 1 D), INTRAVENOUS
     Route: 042
     Dates: start: 20040323, end: 20040415
  3. ASPIRIN [Concomitant]
  4. METRONIDAZOLE [Concomitant]

REACTIONS (2)
  - GRAND MAL CONVULSION [None]
  - PANCYTOPENIA [None]
